FAERS Safety Report 21327275 (Version 1)
Quarter: 2022Q3

REPORT INFORMATION
  Report Type: Spontaneous
  Country: US (occurrence: US)
  Receive Date: 20220913
  Receipt Date: 20220913
  Transmission Date: 20221027
  Serious: Yes (Other)
  Sender: FDA-Public Use
  Company Number: US-Blueprint Medicines Corporation-SP-US-2022-002750

PATIENT
  Age: 67 Year
  Sex: Male

DRUGS (2)
  1. AYVAKIT [Suspect]
     Active Substance: AVAPRITINIB
     Indication: Systemic mastocytosis
     Dosage: TAKE 1 TABLET BY MOUTH ON MONDAY, WEDNESDAY, FRIDAY AND 100MG ON TUESDAY, THURSDAY, SATURDAY, SUNDAY
     Route: 048
     Dates: start: 20160901
  2. AYVAKIT [Suspect]
     Active Substance: AVAPRITINIB
     Dosage: TAKE 1 TABLET BY MOUTH ON TUESDAY, THURSDAY, SATURDAY, SUNDAY AND 200MG ON MONDAY, WEDNESDAY, FRIDAY
     Route: 048
     Dates: start: 20160901

REACTIONS (11)
  - Syncope [Not Recovered/Not Resolved]
  - Gastrointestinal disorder [Not Recovered/Not Resolved]
  - Diabetes mellitus [Not Recovered/Not Resolved]
  - Sleep disorder [Not Recovered/Not Resolved]
  - Arthralgia [Not Recovered/Not Resolved]
  - Pain in extremity [Not Recovered/Not Resolved]
  - Complex regional pain syndrome [Not Recovered/Not Resolved]
  - Anxiety [Not Recovered/Not Resolved]
  - Skin lesion [Not Recovered/Not Resolved]
  - Impaired healing [Not Recovered/Not Resolved]
  - Blood glucose decreased [Not Recovered/Not Resolved]

NARRATIVE: CASE EVENT DATE: 20190906
